FAERS Safety Report 24326991 (Version 3)
Quarter: 2024Q4

REPORT INFORMATION
  Report Type: Spontaneous
  Country: US (occurrence: US)
  Receive Date: 20240917
  Receipt Date: 20241217
  Transmission Date: 20250114
  Serious: Yes (Hospitalization, Other)
  Sender: BAYER HEALTHCARE PHARMACEUTICALS INC.
  Company Number: US-BAYER-2024A128419

PATIENT
  Age: 67 Year
  Sex: Female

DRUGS (14)
  1. ADEMPAS [Suspect]
     Active Substance: RIOCIGUAT
     Indication: Pulmonary hypertension
     Dosage: 0.5 MG, TID
     Dates: start: 20160405
  2. WARFARIN SODIUM [Concomitant]
     Active Substance: WARFARIN SODIUM
  3. ASPIRIN [Concomitant]
     Active Substance: ASPIRIN
  4. FOLIC ACID [Concomitant]
     Active Substance: FOLIC ACID
  5. TRAMADOL [Concomitant]
     Active Substance: TRAMADOL
  6. VITAMIN D3 [Concomitant]
     Active Substance: CHOLECALCIFEROL
  7. JARDIANCE [Concomitant]
     Active Substance: EMPAGLIFLOZIN
  8. SPIRONOLACTONE [Concomitant]
     Active Substance: SPIRONOLACTONE
  9. FUROSEMIDE [Concomitant]
     Active Substance: FUROSEMIDE
  10. LOSARTAN [Concomitant]
     Active Substance: LOSARTAN
  11. POTASSIUM CHLORIDE [Concomitant]
     Active Substance: POTASSIUM CHLORIDE
  12. CALCITRIOL [Concomitant]
     Active Substance: CALCITRIOL
  13. ATORVASTATIN [Concomitant]
     Active Substance: ATORVASTATIN
  14. DOCUSATE SODIUM [Concomitant]
     Active Substance: DOCUSATE SODIUM

REACTIONS (7)
  - Cardiac failure congestive [Recovering/Resolving]
  - Oedema [Recovering/Resolving]
  - Dyspnoea [Not Recovered/Not Resolved]
  - Epistaxis [None]
  - Haemorrhage [None]
  - Orthopnoea [None]
  - Oedema peripheral [None]

NARRATIVE: CASE EVENT DATE: 20240722
